FAERS Safety Report 18599802 (Version 1)
Quarter: 2020Q4

REPORT INFORMATION
  Report Type: Spontaneous
  Country: US (occurrence: US)
  Receive Date: 20201210
  Receipt Date: 20201210
  Transmission Date: 20210114
  Serious: No
  Sender: FDA-Public Use
  Company Number: US-PFIZER INC-2020317283

PATIENT
  Age: 65 Year
  Sex: Female
  Weight: 93 kg

DRUGS (19)
  1. GLIPIZIDE ER [Concomitant]
     Active Substance: GLIPIZIDE
     Dosage: UNK
  2. METFORMIN [Concomitant]
     Active Substance: METFORMIN HYDROCHLORIDE
     Dosage: UNK
  3. AMLODIPINE [Concomitant]
     Active Substance: AMLODIPINE BESYLATE
     Dosage: UNK
  4. DOCETAXEL. [Suspect]
     Active Substance: DOCETAXEL
     Dosage: 144 MG
  5. HERCEPTIN [Concomitant]
     Active Substance: TRASTUZUMAB
     Indication: CHEMOTHERAPY
     Dosage: 547 MG
  6. VALSARTAN HCT [Concomitant]
     Active Substance: HYDROCHLOROTHIAZIDE\VALSARTAN
     Dosage: UNK
  7. LETROZOLE. [Concomitant]
     Active Substance: LETROZOLE
     Dosage: UNK
  8. DOCETAXEL. [Suspect]
     Active Substance: DOCETAXEL
     Indication: TRIPLE POSITIVE BREAST CANCER
     Dosage: 75 MG/M2, CYCLIC (EVERY THREE WEEKS FOR 6 CYCLE)
     Dates: start: 20150914, end: 20151228
  9. DOCETAXEL (SANOFI-AVENTIS) [Suspect]
     Active Substance: DOCETAXEL
     Indication: TRIPLE POSITIVE BREAST CANCER
     Dosage: 75 MG/M2, CYCLIC (EVERY THREE WEEKS FOR 6 CYCLE)
     Dates: start: 20150914, end: 20151228
  10. PARAPLATIN [Concomitant]
     Active Substance: CARBOPLATIN
     Indication: CHEMOTHERAPY
     Dosage: 583 MG
  11. METOPROLOL. [Concomitant]
     Active Substance: METOPROLOL
     Dosage: UNK
  12. DOCETAXEL ACCORD [Suspect]
     Active Substance: DOCETAXEL
     Indication: TRIPLE POSITIVE BREAST CANCER
     Dosage: 75 MG/M2, CYCLIC (EVERY THREE WEEKS FOR 6 CYCLE)
     Dates: start: 20150914, end: 20151228
  13. PERJETA [Concomitant]
     Active Substance: PERTUZUMAB
     Indication: CHEMOTHERAPY
     Dosage: 420 MG
  14. ATORVASTATIN [Concomitant]
     Active Substance: ATORVASTATIN
     Dosage: UNK
  15. DOCETAXEL (SANOFI-AVENTIS) [Suspect]
     Active Substance: DOCETAXEL
     Dosage: 144 MG
  16. DOCETAXEL SANDOZ [Suspect]
     Active Substance: DOCETAXEL
     Indication: TRIPLE POSITIVE BREAST CANCER
     Dosage: 75 MG/M2, CYCLIC (EVERY THREE WEEKS FOR 6 CYCLE)
     Dates: start: 20150914, end: 20151228
  17. PROLIA [Concomitant]
     Active Substance: DENOSUMAB
     Dosage: UNK
  18. DOCETAXEL SANDOZ [Suspect]
     Active Substance: DOCETAXEL
     Dosage: 144 MG
  19. DOCETAXEL ACCORD [Suspect]
     Active Substance: DOCETAXEL
     Dosage: 144 MG

REACTIONS (5)
  - Hair texture abnormal [Not Recovered/Not Resolved]
  - Hair disorder [Not Recovered/Not Resolved]
  - Hair colour changes [Not Recovered/Not Resolved]
  - Madarosis [Not Recovered/Not Resolved]
  - Alopecia [Not Recovered/Not Resolved]
